FAERS Safety Report 9340452 (Version 1)
Quarter: 2013Q2

REPORT INFORMATION
  Report Type: Spontaneous
  Country: US (occurrence: None)
  Receive Date: 20130610
  Receipt Date: 20130610
  Transmission Date: 20140414
  Serious: Yes (Life-Threatening)
  Sender: FDA-Public Use
  Company Number: None

PATIENT
  Age: 66 Year
  Sex: Female
  Weight: 87.54 kg

DRUGS (1)
  1. MACRODANTIN [Suspect]
     Dosage: 1 100MG CAP 2-3X WEEK?5/10 - 19/13

REACTIONS (5)
  - Dyspnoea [None]
  - Chest pain [None]
  - Cough [None]
  - Heart rate increased [None]
  - Anxiety [None]
